FAERS Safety Report 5443256-9 (Version None)
Quarter: 2007Q3

REPORT INFORMATION
  Report Type: 
  Country: None (occurrence: None)
  Receive Date: 20070830
  Receipt Date: 20070814
  Transmission Date: 20080115
  Serious: Yes (Death)
  Sender: FDA-Public Use
  Company Number: ENTC2007-0242

PATIENT
  Age: 87 Year
  Sex: Female

DRUGS (9)
  1. STALEVO 100 [Suspect]
     Indication: PARKINSON'S DISEASE
     Dosage: 100/25/200MG
     Route: 048
     Dates: start: 20070610, end: 20070615
  2. HYPERIUM [Concomitant]
  3. ANCORON [Concomitant]
  4. SUSTRATE [Concomitant]
  5. OXCORD [Concomitant]
  6. DISGREN [Concomitant]
  7. DIGOXIN [Concomitant]
  8. OMEPRAZOLE [Concomitant]
  9. BROMAZEPAM [Concomitant]

REACTIONS (7)
  - ABNORMAL BEHAVIOUR [None]
  - APATHY [None]
  - DEHYDRATION [None]
  - DYSPHAGIA [None]
  - PANCREATITIS ACUTE [None]
  - PHARMACEUTICAL PRODUCT COMPLAINT [None]
  - SOMNOLENCE [None]
